FAERS Safety Report 5627170-1 (Version None)
Quarter: 2008Q1

REPORT INFORMATION
  Report Type: 
  Country: None (occurrence: None)
  Receive Date: 20080212
  Receipt Date: 20080212
  Transmission Date: 20080703
  Serious: Yes (Hospitalization)
  Sender: FDA-Public Use
  Company Number: None

PATIENT
  Sex: Male
  Weight: 79.5 kg

DRUGS (13)
  1. GEMCITABINE [Suspect]
     Indication: PANCREATIC CARCINOMA
     Dosage: 1000MG/M2 D1, D8, D15 IV
     Route: 042
     Dates: start: 20071105, end: 20071120
  2. OXALIPLATIN [Suspect]
     Indication: PANCREATIC CARCINOMA
     Dosage: 85MG/M2 D1, D15 IV
     Route: 042
     Dates: start: 20071105, end: 20071120
  3. GLYBURIDE [Concomitant]
  4. ADALAT [Concomitant]
  5. POTASSIUM CHLORIDE [Concomitant]
  6. LISINOPRIL [Concomitant]
  7. DOXAZOSIN MESYLATE [Concomitant]
  8. CLONIDINE [Concomitant]
  9. NOVLLOG [Concomitant]
  10. LEVEMIR [Concomitant]
  11. COMPAZINE [Concomitant]
  12. PANGESTYME [Concomitant]
  13. ANZEMET [Concomitant]

REACTIONS (3)
  - ARTERY DISSECTION [None]
  - LYMPHATIC DISORDER [None]
  - VENOUS INJURY [None]
